FAERS Safety Report 10539090 (Version 1)
Quarter: 2014Q4

REPORT INFORMATION
  Report Type: Spontaneous
  Country: US (occurrence: US)
  Receive Date: 20141023
  Receipt Date: 20141023
  Transmission Date: 20150529
  Serious: No
  Sender: FDA-Public Use
  Company Number: US-LUNDBECK-DKLU1103959

PATIENT
  Age: 10 Month
  Sex: Male
  Weight: 5 kg

DRUGS (1)
  1. SABRIL [Suspect]
     Active Substance: VIGABATRIN
     Indication: INFANTILE SPASMS
     Route: 048
     Dates: start: 201304

REACTIONS (2)
  - Mobility decreased [Unknown]
  - Slow response to stimuli [Unknown]
